FAERS Safety Report 8845179 (Version 1)
Quarter: 2012Q4

REPORT INFORMATION
  Report Type: 
  Country: US (occurrence: US)
  Receive Date: 20121017
  Receipt Date: 20121017
  Transmission Date: 20130627
  Serious: No
  Sender: FDA-Public Use
  Company Number: US-PFIZER INC-2012258318

PATIENT
  Age: 57 Year
  Sex: Female
  Weight: 63 kg

DRUGS (2)
  1. EFFEXOR XR [Suspect]
     Indication: DEPRESSION
     Dosage: UNK, 1x/day
     Route: 048
     Dates: end: 2010
  2. BENAZEPRIL [Concomitant]
     Indication: HYPERTENSION
     Dosage: 10 mg, 1x/day

REACTIONS (1)
  - Drug ineffective [Unknown]
